FAERS Safety Report 21985118 (Version 2)
Quarter: 2023Q1

REPORT INFORMATION
  Report Type: Report from Study
  Country: MX (occurrence: MX)
  Receive Date: 20230213
  Receipt Date: 20230215
  Transmission Date: 20230417
  Serious: Yes (Hospitalization)
  Sender: FDA-Public Use
  Company Number: MX-SA-SAC20230208000367

PATIENT
  Age: 71 Year
  Sex: Male
  Weight: 79 kg

DRUGS (6)
  1. BELANTAMAB MAFODOTIN [Suspect]
     Active Substance: BELANTAMAB MAFODOTIN
     Indication: Plasma cell myeloma refractory
     Dosage: 156.75 MG (1.90 MG/KG), QCY
     Route: 042
     Dates: start: 20221206
  2. ISATUXIMAB [Suspect]
     Active Substance: ISATUXIMAB
     Indication: Plasma cell myeloma refractory
     Dosage: 825 MG (10 MG/KG), QCY
     Route: 042
     Dates: start: 20221206, end: 20221206
  3. ISATUXIMAB [Suspect]
     Active Substance: ISATUXIMAB
     Dosage: 819 MG (10 MG/KG), QCY
     Route: 042
     Dates: start: 20221213, end: 20221213
  4. ISATUXIMAB [Suspect]
     Active Substance: ISATUXIMAB
     Dosage: 790 MG, QCY
     Route: 042
     Dates: start: 20221227, end: 20221227
  5. ISATUXIMAB [Suspect]
     Active Substance: ISATUXIMAB
     Dosage: 780 MG, QCY
     Route: 042
     Dates: start: 20230103
  6. DEXAMETHASONE [Concomitant]
     Active Substance: DEXAMETHASONE
     Dates: start: 20230108, end: 20230122

REACTIONS (8)
  - Pyrexia [Not Recovered/Not Resolved]
  - Cytomegalovirus infection [Not Recovered/Not Resolved]
  - Device related infection [Recovering/Resolving]
  - Encephalomyelitis [Recovering/Resolving]
  - Delirium [Recovered/Resolved]
  - Generalised tonic-clonic seizure [Recovered/Resolved with Sequelae]
  - Pneumonia [Unknown]
  - Cerebrovascular accident [Recovering/Resolving]

NARRATIVE: CASE EVENT DATE: 20230107
